FAERS Safety Report 9189901 (Version 1)
Quarter: 2013Q1

REPORT INFORMATION
  Report Type: Report from Study
  Country: FR (occurrence: FR)
  Receive Date: 20130326
  Receipt Date: 20130326
  Transmission Date: 20140127
  Serious: Yes (Death)
  Sender: FDA-Public Use
  Company Number: FR-SANOFI-AVENTIS-2013SA030964

PATIENT
  Sex: 0

DRUGS (5)
  1. OXALIPLATIN [Suspect]
     Indication: OESOPHAGEAL CARCINOMA
     Dosage: ON DAY 1
     Route: 065
  2. FLUOROURACIL [Suspect]
     Indication: OESOPHAGEAL CARCINOMA
     Dosage: ON DAY 1, BOLUS
     Route: 065
  3. FLUOROURACIL [Suspect]
     Indication: OESOPHAGEAL CARCINOMA
     Dosage: CONTINUOUS INFUSION 46 HOURS
     Route: 065
  4. LEUCOVORIN [Suspect]
     Indication: OESOPHAGEAL CARCINOMA
     Route: 065
  5. THERAPEUTIC RADIOPHARMACEUTICALS [Suspect]
     Indication: OESOPHAGEAL CARCINOMA
     Dosage: 50 GY (2GY/FR) 5 DAYS PER WEEK FOR 5 WEEKS
     Route: 065

REACTIONS (1)
  - Death [Fatal]
